FAERS Safety Report 15962796 (Version 2)
Quarter: 2019Q3

REPORT INFORMATION
  Report Type: Spontaneous
  Country: GR (occurrence: GR)
  Receive Date: 20190214
  Receipt Date: 20190809
  Transmission Date: 20191004
  Serious: Yes (Hospitalization, Other)
  Sender: FDA-Public Use
  Company Number: GR-BAUSCH-BL-2019-003266

PATIENT
  Age: 22 Year
  Sex: Male

DRUGS (2)
  1. INFLIXIMAB [Suspect]
     Active Substance: INFLIXIMAB
     Indication: COLITIS
     Dosage: RESCUE TREATMENT, LAST INFUSION FOR REMISSION INDUCTION WAS ADMINISTERED 15 DAYS AGO
     Route: 065
  2. PREDNISOLONE. [Suspect]
     Active Substance: PREDNISOLONE
     Indication: COLITIS
     Route: 048

REACTIONS (3)
  - Bacteraemia [Unknown]
  - Clostridium difficile infection [Recovering/Resolving]
  - Cytomegalovirus infection [Unknown]
